FAERS Safety Report 7523692-7 (Version None)
Quarter: 2011Q2

REPORT INFORMATION
  Report Type: 
  Country: None (occurrence: None)
  Receive Date: 20110603
  Receipt Date: 20110525
  Transmission Date: 20111010
  Serious: Yes (Other)
  Sender: FDA-Public Use
  Company Number: US-ASTRAZENECA-2011SE32111

PATIENT
  Age: 70 Year
  Sex: Male
  Weight: 131.5 kg

DRUGS (10)
  1. ALLOPURINOL [Concomitant]
     Indication: GOUT
  2. FLUROSEMIDE [Concomitant]
     Indication: POLYURIA
  3. FLUOCINIDE [Concomitant]
     Indication: INFECTION
  4. FISH OIL [Concomitant]
     Indication: CARDIAC DISORDER
  5. LEVAMERE [Concomitant]
     Indication: DIABETES MELLITUS
  6. CITELOPRAM [Concomitant]
  7. ASPIRIN [Concomitant]
     Indication: CARDIAC DISORDER
  8. CHLORHEXADONE [Concomitant]
     Indication: INFECTION
  9. ZESTRIL [Suspect]
     Indication: HYPERCHOLESTEROLAEMIA
     Route: 048
     Dates: start: 20020101
  10. ACETAMINOPHEN [Concomitant]
     Indication: PAIN

REACTIONS (2)
  - EPISTAXIS [None]
  - SKIN HAEMORRHAGE [None]
